FAERS Safety Report 15933052 (Version 2)
Quarter: 2019Q2

REPORT INFORMATION
  Report Type: Spontaneous
  Country: US (occurrence: US)
  Receive Date: 20190207
  Receipt Date: 20190516
  Transmission Date: 20190711
  Serious: No
  Sender: FDA-Public Use
  Company Number: US-KYOWAKIRIN-2018BKK010420

PATIENT

DRUGS (1)
  1. CRYSVITA [Suspect]
     Active Substance: BUROSUMAB-TWZA
     Indication: HYPOPHOSPHATAEMIA
     Dosage: 70 MG, EVERY TWO WEEKS
     Route: 058
     Dates: start: 20180913

REACTIONS (3)
  - Hypertension [Unknown]
  - Headache [Unknown]
  - Photopsia [Unknown]

NARRATIVE: CASE EVENT DATE: 201811
